FAERS Safety Report 19559467 (Version 2)
Quarter: 2021Q3

REPORT INFORMATION
  Report Type: Spontaneous
  Country: US (occurrence: US)
  Receive Date: 20210715
  Receipt Date: 20210813
  Transmission Date: 20211014
  Serious: No
  Sender: FDA-Public Use
  Company Number: US-PFIZER INC-2021391037

PATIENT
  Age: 71 Year
  Sex: Male
  Weight: 128.82 kg

DRUGS (3)
  1. LYRICA [Suspect]
     Active Substance: PREGABALIN
     Dosage: 25 MG, TID
     Route: 048
  2. LYRICA [Suspect]
     Active Substance: PREGABALIN
     Indication: NEUROPATHY PERIPHERAL
     Dosage: 50 MG, 3X/DAY (50MG, TAKES THREE TIMES PER DAY BY MOUTH)
     Route: 048
  3. LYRICA [Suspect]
     Active Substance: PREGABALIN
     Dosage: 50 MG, 3X/DAY (50MG, TAKES THREE TIMES PER DAY BY MOUTH)
     Route: 048

REACTIONS (4)
  - Drug ineffective [Unknown]
  - Nightmare [Unknown]
  - Mobility decreased [Unknown]
  - Drug intolerance [Unknown]
